FAERS Safety Report 5021401-7 (Version None)
Quarter: 2006Q2

REPORT INFORMATION
  Report Type: 
  Country: None (occurrence: None)
  Receive Date: 20060608
  Receipt Date: 20060531
  Transmission Date: 20061013
  Serious: Yes (Death)
  Sender: FDA-Public Use
  Company Number: US-JNJFOC-20051106350

PATIENT
  Sex: Female
  Weight: 72 kg

DRUGS (1)
  1. REMICADE [Suspect]
     Indication: CROHN'S DISEASE
     Dosage: INFUSED VERY LITTLE, ONLY 5-10 CC
     Route: 042

REACTIONS (2)
  - DEATH [None]
  - RENAL FAILURE ACUTE [None]
